FAERS Safety Report 17941740 (Version 1)
Quarter: 2020Q2

REPORT INFORMATION
  Report Type: Spontaneous
  Country: US (occurrence: US)
  Receive Date: 20200625
  Receipt Date: 20200625
  Transmission Date: 20200714
  Serious: No
  Sender: FDA-Public Use
  Company Number: US-SA-2020SA158411

PATIENT

DRUGS (2)
  1. GABAPENTIN. [Concomitant]
     Active Substance: GABAPENTIN
     Indication: NEURALGIA
     Dosage: 100 MG, HS
     Route: 065
  2. ALLEGRA [Suspect]
     Active Substance: FEXOFENADINE HYDROCHLORIDE
     Indication: HYPERSENSITIVITY
     Dosage: (1/2 OF A 180MG TABLET IN THE MORNING AND 1/2 AT NIGHT)
     Route: 065

REACTIONS (2)
  - Wrong technique in product usage process [Unknown]
  - Somnolence [Unknown]
